FAERS Safety Report 15141409 (Version 2)
Quarter: 2018Q3

REPORT INFORMATION
  Report Type: Report from Study
  Country: IL (occurrence: IL)
  Receive Date: 20180713
  Receipt Date: 20180727
  Transmission Date: 20181010
  Serious: Yes (Hospitalization, Other)
  Sender: FDA-Public Use
  Company Number: IL-IPSEN BIOPHARMACEUTICALS, INC.-2018-10203

PATIENT
  Age: 80 Year
  Sex: Female

DRUGS (1)
  1. SOMATULINE [Suspect]
     Active Substance: LANREOTIDE ACETATE
     Indication: NEUROENDOCRINE TUMOUR
     Dosage: 240 MG
     Route: 065
     Dates: start: 20160101, end: 201807

REACTIONS (4)
  - Malaise [Unknown]
  - Disease progression [Unknown]
  - Asthenia [Unknown]
  - Overdose [Unknown]

NARRATIVE: CASE EVENT DATE: 201807
